FAERS Safety Report 6755702-9 (Version None)
Quarter: 2010Q2

REPORT INFORMATION
  Report Type: 
  Country: None (occurrence: None)
  Receive Date: 20100604
  Receipt Date: 20100525
  Transmission Date: 20101027
  Serious: Yes (Other)
  Sender: FDA-Public Use
  Company Number: JP-PFIZER INC-2010033300

PATIENT
  Sex: Female

DRUGS (3)
  1. AROMASIN [Suspect]
     Dosage: UNK
     Route: 048
     Dates: start: 20091118
  2. DECADRON [Concomitant]
     Dosage: UNK
     Route: 048
  3. TASUOMIN [Concomitant]
     Dosage: UNK
     Route: 048

REACTIONS (7)
  - ABDOMINAL PAIN UPPER [None]
  - BLOOD ALKALINE PHOSPHATASE INCREASED [None]
  - DYSPHAGIA [None]
  - HOT FLUSH [None]
  - HYPOAESTHESIA [None]
  - PALPITATIONS [None]
  - PRODUCTIVE COUGH [None]
